FAERS Safety Report 19053288 (Version 3)
Quarter: 2021Q2

REPORT INFORMATION
  Report Type: Spontaneous
  Country: JP (occurrence: JP)
  Receive Date: 20210325
  Receipt Date: 20210604
  Transmission Date: 20210717
  Serious: Yes (Other)
  Sender: FDA-Public Use
  Company Number: JP-ROCHE-2794842

PATIENT
  Age: 74 Year
  Sex: Male

DRUGS (5)
  1. AVASTIN [Suspect]
     Active Substance: BEVACIZUMAB
     Indication: LUNG NEOPLASM MALIGNANT
     Dosage: UNCERTAIN DOSAGE FOR 4 COURSES
     Route: 041
  2. AVASTIN [Suspect]
     Active Substance: BEVACIZUMAB
     Dosage: UNCERTAIN DOSAGE AS MAINTENANCE THERAPY
     Route: 041
  3. CARBOPLATIN. [Concomitant]
     Active Substance: CARBOPLATIN
     Indication: LUNG NEOPLASM MALIGNANT
     Dosage: UNCERTAIN DOSAGE FOR 4 COURSES
     Route: 041
  4. PEMETREXED SODIUM HYDRATE [Suspect]
     Active Substance: PEMETREXED
     Indication: NON-SMALL CELL LUNG CANCER
     Dosage: UNCERTAIN DOSAGE FOR 4 COURSES
     Route: 041
  5. PEMETREXED SODIUM HYDRATE [Suspect]
     Active Substance: PEMETREXED
     Dosage: UNCERTAIN DOSAGE AS MAINTENANCE THERAPY
     Route: 041

REACTIONS (1)
  - Renal impairment [Not Recovered/Not Resolved]
